FAERS Safety Report 8231552-1 (Version None)
Quarter: 2012Q1

REPORT INFORMATION
  Report Type: 
  Country: None (occurrence: None)
  Receive Date: 20120323
  Receipt Date: 20120320
  Transmission Date: 20120608
  Serious: Yes (Other)
  Sender: FDA-Public Use
  Company Number: PHHY2012BR024851

PATIENT
  Sex: Male

DRUGS (5)
  1. GALVUS MET [Suspect]
     Dosage: 1 DF (1000/50 MG), BID
  2. LIPITOR [Concomitant]
     Dosage: 40 UKN, QD
  3. RASILEZ HCT [Suspect]
     Dosage: 1 DF (300/12.5 MG), QD
  4. ICTUS [Concomitant]
     Dosage: 25 UKN, BID
  5. ATENOLOL AND CHLORTHALIDONE [Concomitant]
     Dosage: UNK UKN, QD

REACTIONS (2)
  - TYPE 2 DIABETES MELLITUS [None]
  - BLOOD GLUCOSE INCREASED [None]
